FAERS Safety Report 6683924-4 (Version None)
Quarter: 2010Q2

REPORT INFORMATION
  Report Type: 
  Country: None (occurrence: None)
  Receive Date: 20100416
  Receipt Date: 20100408
  Transmission Date: 20101027
  Serious: Yes (Hospitalization)
  Sender: FDA-Public Use
  Company Number: FR-PFIZER INC-2010044406

PATIENT
  Age: 60 Year
  Sex: Male

DRUGS (18)
  1. CAMPTOSAR [Suspect]
     Indication: RECTAL CANCER
     Dosage: 250 MG, EVERY 15 DAYS
     Route: 042
     Dates: start: 20090525, end: 20091005
  2. SOLU-MEDROL [Suspect]
     Indication: NAUSEA
     Dosage: 80 MG, EVERY 15 DAYS
     Route: 042
     Dates: start: 20090525, end: 20091005
  3. AVASTIN [Suspect]
     Indication: RECTAL CANCER
     Dosage: 310 MG, EVERY 15 DAYS
     Route: 042
     Dates: start: 20090525, end: 20091005
  4. FLUOROURACIL [Suspect]
     Indication: RECTAL CANCER
     Dosage: 3350 MG, EVERY 15 DAYS
     Route: 042
     Dates: start: 20090525, end: 20091005
  5. CALCIUM LEVOFOLINATE [Suspect]
     Indication: RECTAL CANCER
     Dosage: 336 MG, EVERY 15 DAYS
     Route: 058
     Dates: start: 20090525, end: 20091005
  6. EMEND [Suspect]
     Indication: NAUSEA
     Dosage: 125MG DAY1/ 80MG DAY2, DAY3
     Route: 048
     Dates: start: 20090522, end: 20091005
  7. EMEND [Suspect]
     Dosage: UNK
  8. ZOPHREN [Suspect]
     Indication: NAUSEA
     Dosage: 8 MG, EVERY 15 DAYS
     Route: 042
     Dates: start: 20090525, end: 20091005
  9. ATROPINE [Suspect]
     Indication: NAUSEA
     Dosage: 0.25 MG, EVERY 15 DAYS
     Route: 058
     Dates: start: 20090525, end: 20091005
  10. ZOLPIDEM [Concomitant]
     Dosage: UNK
  11. DEROXAT [Concomitant]
     Dosage: UNK
  12. DIFFU K [Concomitant]
     Dosage: 2 DF, 3X/DAY
  13. ACETAMINOPHEN [Concomitant]
     Dosage: 1 DF, 4X/DAY
  14. TIORFAN [Concomitant]
     Dosage: 1 DF, 3X/DAY
  15. VOGALENE [Concomitant]
     Dosage: 1 DF, 3X/DAY
  16. DEBRIDAT ^IBRAHIM^ [Concomitant]
     Dosage: 2 DF, 3X/DAY
  17. CREON [Concomitant]
     Dosage: UNK
  18. IMODIUM [Concomitant]
     Dosage: UNK

REACTIONS (1)
  - HEPATITIS CHOLESTATIC [None]
